FAERS Safety Report 19823207 (Version 1)
Quarter: 2021Q3

REPORT INFORMATION
  Report Type: Spontaneous
  Country: FR (occurrence: FR)
  Receive Date: 20210913
  Receipt Date: 20210913
  Transmission Date: 20211014
  Serious: Yes (Other)
  Sender: FDA-Public Use
  Company Number: NVSC2021FR203364

PATIENT
  Age: 61 Year
  Sex: Male
  Weight: 81 kg

DRUGS (4)
  1. EXFORGE [Suspect]
     Active Substance: AMLODIPINE BESYLATE\VALSARTAN
     Indication: HYPERTENSION
     Dosage: UNK
     Route: 048
     Dates: start: 201709, end: 20171108
  2. BOSULIF [Suspect]
     Active Substance: BOSUTINIB MONOHYDRATE
     Indication: CHRONIC MYELOID LEUKAEMIA
     Dosage: 400 MG, QD (1X/DAY)
     Route: 048
     Dates: start: 20170908
  3. EXFORGE [Suspect]
     Active Substance: AMLODIPINE BESYLATE\VALSARTAN
     Dosage: UNK (DOSE REDUCTION)
     Route: 048
     Dates: start: 20171109, end: 20171123
  4. AMLOR [Concomitant]
     Active Substance: AMLODIPINE BESYLATE
     Indication: HYPERTENSION
     Dosage: UNK
     Route: 048
     Dates: start: 20170809

REACTIONS (7)
  - Constipation [Recovered/Resolved]
  - Infection [Recovered/Resolved]
  - Diarrhoea [Recovered/Resolved]
  - Haematuria [Recovered/Resolved]
  - Renal failure [Not Recovered/Not Resolved]
  - Diarrhoea [Recovered/Resolved]
  - Pneumonia [Recovered/Resolved]

NARRATIVE: CASE EVENT DATE: 201709
